FAERS Safety Report 9215302 (Version 1)
Quarter: 2013Q2

REPORT INFORMATION
  Report Type: Report from Study
  Country: IT (occurrence: IT)
  Receive Date: 20130405
  Receipt Date: 20130405
  Transmission Date: 20140414
  Serious: Yes (Other)
  Sender: FDA-Public Use
  Company Number: IT-GLAXOSMITHKLINE-B0880981A

PATIENT
  Age: 57 Year
  Sex: 0

DRUGS (1)
  1. VOTRIENT [Suspect]
     Indication: METASTATIC RENAL CELL CARCINOMA
     Route: 065

REACTIONS (2)
  - Dialysis [Unknown]
  - Hepatotoxicity [Unknown]
